FAERS Safety Report 11913110 (Version 1)
Quarter: 2016Q1

REPORT INFORMATION
  Report Type: Spontaneous
  Country: US (occurrence: None)
  Receive Date: 20160112
  Receipt Date: 20160112
  Transmission Date: 20160526
  Serious: Yes (Life-Threatening, Disabling)
  Sender: FDA-Public Use
  Company Number: None

PATIENT
  Age: 15 Year
  Sex: Female
  Weight: 48.54 kg

DRUGS (4)
  1. LEVOFLOXACIN 500MG DOCTOR.READY [Suspect]
     Active Substance: LEVOFLOXACIN
     Indication: WISDOM TEETH REMOVAL
     Route: 048
     Dates: start: 20160106, end: 20160106
  2. AUGMENT [Concomitant]
  3. CHLORHEXADINE [Concomitant]
     Active Substance: CHLORHEXIDINE
  4. LEVOFLOXACIN 500MG DOCTOR.READY [Suspect]
     Active Substance: LEVOFLOXACIN
     Indication: OSTEOMYELITIS
     Route: 048
     Dates: start: 20160106, end: 20160106

REACTIONS (6)
  - Agitation [None]
  - Psychomotor hyperactivity [None]
  - Tachyphrenia [None]
  - Hallucination [None]
  - Suicidal ideation [None]
  - Mania [None]

NARRATIVE: CASE EVENT DATE: 20160106
